FAERS Safety Report 4599990-6 (Version None)
Quarter: 2005Q1

REPORT INFORMATION
  Report Type: 
  Country: None (occurrence: None)
  Receive Date: 20050303
  Receipt Date: 20050218
  Transmission Date: 20050727
  Serious: Yes (Death, Hospitalization)
  Sender: FDA-Public Use
  Company Number: HQWYE405418FEB05

PATIENT
  Age: 76 Year
  Sex: Male

DRUGS (7)
  1. AMIODARONE HCL [Suspect]
     Indication: ATRIAL FLUTTER
     Dosage: 200 MG 1X PER 1 DAY ORAL
     Route: 048
     Dates: start: 19980101, end: 20041201
  2. CARBIMAZOLE (CARBIMAZOLE) [Suspect]
     Indication: HYPERTHYROIDISM
     Dosage: 20 MG 2X PER 1 DAY
  3. WARFARIN SODIUM [Concomitant]
  4. SIMVASTATIN [Concomitant]
  5. NICORANDIL (NICORANDIL) [Concomitant]
  6. LISINOPRIL (LISINOPRL) [Concomitant]
  7. CALCICHEW-D3 (CALCIUM CARBONATE/COLECALCIFEROL) [Concomitant]

REACTIONS (3)
  - HYPERTHYROIDISM [None]
  - NEUTROPENIC SEPSIS [None]
  - THYROTOXIC CRISIS [None]
